FAERS Safety Report 25175132 (Version 2)
Quarter: 2025Q3

REPORT INFORMATION
  Report Type: Spontaneous
  Country: US (occurrence: US)
  Receive Date: 20250408
  Receipt Date: 20250709
  Transmission Date: 20251021
  Serious: No
  Sender: TG THERAPEUTICS
  Company Number: US-TG THERAPEUTICS INC.-TGT004547

PATIENT

DRUGS (3)
  1. BRIUMVI [Suspect]
     Active Substance: UBLITUXIMAB-XIIY
     Indication: Multiple sclerosis
     Route: 042
     Dates: start: 20241231, end: 20241231
  2. BRIUMVI [Suspect]
     Active Substance: UBLITUXIMAB-XIIY
     Route: 042
     Dates: start: 20250114, end: 20250114
  3. ZEPBOUND [Concomitant]
     Active Substance: TIRZEPATIDE
     Indication: Weight decreased
     Route: 058

REACTIONS (5)
  - Gait disturbance [Recovered/Resolved]
  - Neck pain [Not Recovered/Not Resolved]
  - Joint swelling [Recovered/Resolved]
  - Infusion related reaction [Unknown]
  - Pain in extremity [Not Recovered/Not Resolved]

NARRATIVE: CASE EVENT DATE: 20250101
